FAERS Safety Report 5892976-0 (Version None)
Quarter: 2008Q3

REPORT INFORMATION
  Report Type: 
  Country: None (occurrence: None)
  Receive Date: 20080918
  Receipt Date: 20080915
  Transmission Date: 20090109
  Serious: Yes (Hospitalization)
  Sender: FDA-Public Use
  Company Number: OMPQ-GE-0808S-0703

PATIENT
  Age: 72 Year
  Sex: Female
  Weight: 75 kg

DRUGS (2)
  1. ACCUPAQUE [Suspect]
     Indication: PULMONARY EMBOLISM
     Dosage: 130 ML, SINGLE DOSE, IV
     Route: 042
     Dates: start: 20080815, end: 20080815
  2. SODIUM PERCHLORATE (IRENAT) [Concomitant]

REACTIONS (6)
  - BRONCHOSPASM [None]
  - CHOLESTASIS [None]
  - DYSPNOEA [None]
  - ERYTHEMA [None]
  - SKIN EXFOLIATION [None]
  - TOXIC SKIN ERUPTION [None]
